FAERS Safety Report 4647440-3 (Version None)
Quarter: 2005Q2

REPORT INFORMATION
  Report Type: 
  Country: None (occurrence: None)
  Receive Date: 20050428
  Receipt Date: 20050419
  Transmission Date: 20051028
  Serious: Yes (Death, Hospitalization)
  Sender: FDA-Public Use
  Company Number: NSADSS2003024148

PATIENT
  Sex: Female
  Weight: 123.83 kg

DRUGS (13)
  1. DURAGESIC-100 [Suspect]
     Indication: MIGRAINE
     Route: 062
     Dates: start: 20010330
  2. XANAX [Concomitant]
  3. LORTAB [Concomitant]
  4. LORTAB [Concomitant]
  5. MAXOL [Concomitant]
  6. PAXIL [Concomitant]
  7. PREMARIN [Concomitant]
  8. VERAPAMIL [Concomitant]
  9. DEPAKOTE [Concomitant]
  10. ASMACORT [Concomitant]
  11. TYLENOL [Concomitant]
  12. ELAVIL [Concomitant]
  13. SEREVENT [Concomitant]

REACTIONS (7)
  - ASTHENIA [None]
  - DIZZINESS [None]
  - MALLORY-WEISS SYNDROME [None]
  - MEDICATION ERROR [None]
  - MIGRAINE [None]
  - NARCOTIC INTOXICATION [None]
  - VISION BLURRED [None]
